FAERS Safety Report 22294028 (Version 1)
Quarter: 2023Q2

REPORT INFORMATION
  Report Type: Spontaneous
  Country: US (occurrence: None)
  Receive Date: 20230505
  Receipt Date: 20230505
  Transmission Date: 20230721
  Serious: Yes (Hospitalization)
  Sender: FDA-Public Use
  Company Number: None

PATIENT
  Sex: Female
  Weight: 65.77 kg

DRUGS (6)
  1. CAPECITABINE [Suspect]
     Active Substance: CAPECITABINE
     Indication: Colon cancer
  2. CLINDAMYCIN [Concomitant]
     Active Substance: CLINDAMYCIN
  3. NORCO [Concomitant]
     Active Substance: ACETAMINOPHEN\HYDROCODONE BITARTRATE
  4. ONDANSETRON [Concomitant]
     Active Substance: ONDANSETRON
  5. PEPCID [Concomitant]
     Active Substance: FAMOTIDINE
  6. XARELTO [Concomitant]
     Active Substance: RIVAROXABAN

REACTIONS (1)
  - Norovirus infection [None]

NARRATIVE: CASE EVENT DATE: 20230426
